FAERS Safety Report 4812130-0 (Version None)
Quarter: 2005Q4

REPORT INFORMATION
  Report Type: 
  Country: None (occurrence: None)
  Receive Date: 20051028
  Receipt Date: 20040624
  Transmission Date: 20060501
  Serious: No
  Sender: FDA-Public Use
  Company Number: US-GLAXOSMITHKLINE-A0515885A

PATIENT
  Age: 66 Year
  Sex: Female

DRUGS (7)
  1. ADVAIR DISKUS 100/50 [Suspect]
     Indication: ASTHMA
     Dosage: 1PUFF TWICE PER DAY
     Route: 055
     Dates: start: 20040202, end: 20040616
  2. FLOVENT [Suspect]
     Indication: ASTHMA
     Dosage: 2PUFF TWICE PER DAY
     Route: 055
     Dates: start: 20040617, end: 20040623
  3. CELEXA [Concomitant]
  4. LIPITOR [Concomitant]
  5. LORATADINE [Concomitant]
  6. NASONEX [Concomitant]
  7. LORAZEPAM [Concomitant]

REACTIONS (4)
  - DIZZINESS [None]
  - FATIGUE [None]
  - MUSCLE SPASMS [None]
  - RESTLESS LEGS SYNDROME [None]
